FAERS Safety Report 23670099 (Version 6)
Quarter: 2024Q3

REPORT INFORMATION
  Report Type: Spontaneous
  Country: US (occurrence: US)
  Receive Date: 20240325
  Receipt Date: 20240918
  Transmission Date: 20241017
  Serious: No
  Sender: LUNDBECK
  Company Number: US-LUNDBECK-DKLU3075758

PATIENT

DRUGS (7)
  1. VYEPTI [Suspect]
     Active Substance: EPTINEZUMAB-JJMR
     Indication: Migraine
     Dosage: 50 MILLIGRAM
     Route: 041
     Dates: start: 20240313
  2. VYEPTI [Suspect]
     Active Substance: EPTINEZUMAB-JJMR
     Dosage: 100 MILLIGRAM
     Route: 041
  3. VYEPTI [Suspect]
     Active Substance: EPTINEZUMAB-JJMR
     Dosage: 300 MILLIGRAM
     Route: 041
  4. ADVIL LIQUI-GELS [Suspect]
     Active Substance: IBUPROFEN
     Indication: Product used for unknown indication
     Dosage: 400 MILLIGRAM
  5. NURTEC ODT [Concomitant]
     Active Substance: RIMEGEPANT SULFATE
     Indication: Product used for unknown indication
  6. MAGNESIUM [Concomitant]
     Active Substance: MAGNESIUM
  7. RIBOFLAVIN [Concomitant]
     Active Substance: RIBOFLAVIN
     Dosage: 4 PILLS A DAY

REACTIONS (8)
  - Abdominal pain upper [Unknown]
  - Asthenia [Recovering/Resolving]
  - Feeling abnormal [Unknown]
  - Nausea [Unknown]
  - Therapeutic product effect incomplete [Unknown]
  - Migraine [Unknown]
  - Pain [Unknown]
  - Product use issue [Unknown]
